FAERS Safety Report 18136266 (Version 1)
Quarter: 2020Q3

REPORT INFORMATION
  Report Type: Report from Study
  Country: BE (occurrence: BE)
  Receive Date: 20200811
  Receipt Date: 20200811
  Transmission Date: 20201103
  Serious: Yes (Death, Other)
  Sender: FDA-Public Use
  Company Number: BE-TAKEDA-2020TUS029259

PATIENT
  Age: 13 Year
  Sex: Female

DRUGS (3)
  1. PONATINIB [Suspect]
     Active Substance: PONATINIB
     Indication: TYROSINE KINASE MUTATION
  2. PONATINIB [Suspect]
     Active Substance: PONATINIB
     Indication: METASTASES TO MENINGES
  3. PONATINIB [Suspect]
     Active Substance: PONATINIB
     Indication: GLIOBLASTOMA MULTIFORME
     Dosage: 30 MILLIGRAM, QD
     Route: 048
     Dates: start: 20200619, end: 20200717

REACTIONS (10)
  - Muscular weakness [Unknown]
  - Product administered to patient of inappropriate age [Unknown]
  - Urinary retention [Unknown]
  - Disease progression [Fatal]
  - Rash maculo-papular [Recovering/Resolving]
  - Glioblastoma multiforme [Fatal]
  - Paralysis [Unknown]
  - Neuralgia [Unknown]
  - Off label use [Unknown]
  - Abdominal pain upper [Recovered/Resolved]

NARRATIVE: CASE EVENT DATE: 20200619
